FAERS Safety Report 4873907-9 (Version None)
Quarter: 2006Q1

REPORT INFORMATION
  Report Type: 
  Country: None (occurrence: None)
  Receive Date: 20060104
  Receipt Date: 20051222
  Transmission Date: 20060701
  Serious: Yes (Other)
  Sender: FDA-Public Use
  Company Number: 2005172654

PATIENT
  Sex: Male
  Weight: 61.2356 kg

DRUGS (5)
  1. LIPITOR [Suspect]
     Indication: BLOOD CHOLESTEROL INCREASED
     Dosage: (1 D), ORAL
     Route: 048
  2. NEURONTIN [Suspect]
     Indication: NEURALGIA
     Dates: start: 20030101
  3. DIOVAN [Concomitant]
  4. RANITIDINE HCL [Concomitant]
  5. ALL OTHER THERAPEUTIC PRODUCTS [Concomitant]

REACTIONS (9)
  - ACCIDENT [None]
  - CONSTIPATION [None]
  - FATIGUE [None]
  - MYALGIA [None]
  - NECK INJURY [None]
  - NEURALGIA [None]
  - PAIN [None]
  - SHOULDER PAIN [None]
  - TREATMENT NONCOMPLIANCE [None]
